FAERS Safety Report 9709025 (Version 5)
Quarter: 2014Q1

REPORT INFORMATION
  Report Type: Report from Study
  Country: US (occurrence: US)
  Receive Date: 20131125
  Receipt Date: 20140210
  Transmission Date: 20141002
  Serious: Yes (Hospitalization)
  Sender: FDA-Public Use
  Company Number: US-ACTELION-A-NJ2011-56890

PATIENT
  Age: 49 Year
  Sex: Male

DRUGS (3)
  1. TRACLEER [Suspect]
     Indication: PULMONARY ARTERIAL HYPERTENSION
     Dosage: 125 MG, BID
     Route: 048
     Dates: start: 20110131
  2. REVATIO [Concomitant]
  3. LASIX [Concomitant]

REACTIONS (8)
  - Gastric operation [Unknown]
  - Small intestinal obstruction [Recovering/Resolving]
  - Gastric disorder [Recovering/Resolving]
  - Intestinal obstruction [Unknown]
  - Pneumonia [Unknown]
  - Asthenia [Unknown]
  - Muscular weakness [Recovering/Resolving]
  - Drug dose omission [Unknown]
